FAERS Safety Report 7213559-6 (Version None)
Quarter: 2011Q1

REPORT INFORMATION
  Report Type: 
  Country: None (occurrence: None)
  Receive Date: 20110106
  Receipt Date: 20101123
  Transmission Date: 20110831
  Serious: No
  Sender: FDA-Public Use
  Company Number: US-JNJFOC-20101108555

PATIENT
  Sex: Female
  Weight: 138.35 kg

DRUGS (16)
  1. INVEGA SUSTENNA [Suspect]
     Indication: SCHIZOPHRENIA
     Route: 030
  2. LANTUS [Concomitant]
     Indication: DIABETES MELLITUS
     Route: 058
  3. ZOFRAN [Concomitant]
     Indication: NAUSEA
     Route: 048
  4. PROTONIX [Concomitant]
     Indication: PROPHYLAXIS AGAINST GASTROINTESTINAL ULCER
     Route: 048
  5. TRILIPIX [Concomitant]
     Indication: BLOOD TRIGLYCERIDES INCREASED
     Route: 048
  6. INDERAL LA [Concomitant]
     Indication: BLOOD PRESSURE ABNORMAL
     Route: 048
  7. LORTAB [Concomitant]
     Indication: MIGRAINE
     Route: 048
  8. WARFARIN [Concomitant]
     Indication: THROMBOSIS
     Route: 048
  9. METFORMIN HCL [Concomitant]
     Indication: DIABETES MELLITUS
     Route: 048
  10. LEXAPRO [Concomitant]
     Indication: DEPRESSION
     Route: 048
  11. ELAVIL [Concomitant]
     Indication: SLEEP DISORDER
     Route: 048
  12. TEGRETOL-XR [Concomitant]
     Indication: PRODUCT USED FOR UNKNOWN INDICATION
     Route: 048
  13. VALIUM [Concomitant]
     Indication: ANXIETY
     Route: 048
  14. CRESTOR [Concomitant]
     Indication: BLOOD CHOLESTEROL ABNORMAL
     Route: 048
  15. HUMALOG [Concomitant]
     Indication: DIABETES MELLITUS
     Route: 058
  16. HALDOL [Concomitant]
     Indication: SCHIZOPHRENIA
     Route: 048

REACTIONS (2)
  - WEIGHT INCREASED [None]
  - ARTHRALGIA [None]
